FAERS Safety Report 8899847 (Version 2)
Quarter: 2013Q1

REPORT INFORMATION
  Report Type: Spontaneous
  Country: FI (occurrence: FI)
  Receive Date: 20121109
  Receipt Date: 20130114
  Transmission Date: 20140127
  Serious: Yes (Hospitalization, Other)
  Sender: FDA-Public Use
  Company Number: PHHY2012FI102663

PATIENT
  Age: 18 Year
  Sex: Male

DRUGS (10)
  1. LEPONEX [Suspect]
     Dosage: 300 MG, UNK
  2. LEPONEX [Suspect]
     Dosage: 75 MG, UNK
  3. LEPONEX [Suspect]
     Dosage: 50 MG, UNK
  4. LEPONEX [Suspect]
     Dosage: 75 MG, UNK
  5. LEPONEX [Suspect]
     Dosage: 100 MG, UNK
  6. LAMICTAL [Concomitant]
     Indication: EPILEPSY
     Dosage: 100 MG, UNK
  7. DEPRAKINE [Concomitant]
     Indication: EPILEPSY
     Dosage: 1200 MG, UNK
  8. TRILEPTAL [Concomitant]
     Indication: EPILEPSY
     Dosage: 600 MG, UNK
  9. GABAPENTIN [Concomitant]
     Indication: EPILEPSY
  10. TEMESTA [Concomitant]
     Dosage: PRN

REACTIONS (3)
  - Aggression [Unknown]
  - Psychiatric symptom [Unknown]
  - Neutrophil count decreased [Unknown]
